FAERS Safety Report 7254753 (Version 6)
Quarter: 2014Q1

REPORT INFORMATION
  Report Type: Spontaneous
  Country: US (occurrence: US)
  Receive Date: 20100125
  Receipt Date: 20140321
  Transmission Date: 20141002
  Serious: Yes (Other)
  Sender: FDA-Public Use
  Company Number: US-JNJFOC-20100104282

PATIENT
  Age: 68 Year
  Sex: Female
  Weight: 90.27 kg

DRUGS (15)
  1. REMICADE [Suspect]
     Indication: CROHN^S DISEASE
     Route: 042
     Dates: start: 20100414
  2. REMICADE [Suspect]
     Indication: CROHN^S DISEASE
     Route: 042
     Dates: start: 20101207, end: 20101207
  3. REMICADE [Suspect]
     Indication: CROHN^S DISEASE
     Dosage: 5 VIALS
     Route: 042
     Dates: start: 20100217, end: 201002
  4. REMICADE [Suspect]
     Indication: CROHN^S DISEASE
     Route: 042
     Dates: start: 200901
  5. REMICADE [Suspect]
     Indication: CROHN^S DISEASE
     Route: 042
     Dates: start: 200201, end: 200711
  6. REMICADE [Suspect]
     Indication: CROHN^S DISEASE
     Dosage: 5 VIALS
     Route: 042
     Dates: start: 20091223
  7. REMICADE [Suspect]
     Indication: CROHN^S DISEASE
     Dosage: 5 VIALS
     Route: 042
     Dates: start: 20090212
  8. REMICADE [Suspect]
     Indication: CROHN^S DISEASE
     Route: 042
     Dates: start: 20100527
  9. BENADRYL [Concomitant]
     Indication: PREMEDICATION
     Route: 042
     Dates: start: 20101207
  10. BENADRYL [Concomitant]
     Indication: PREMEDICATION
     Route: 042
     Dates: start: 20100527
  11. BENADRYL [Concomitant]
     Indication: PREMEDICATION
     Route: 042
     Dates: start: 2009
  12. SOLUCORTEF [Concomitant]
     Indication: PREMEDICATION
     Route: 042
     Dates: start: 2009
  13. SOLUCORTEF [Concomitant]
     Indication: PREMEDICATION
     Route: 042
     Dates: start: 20101207
  14. SOLUCORTEF [Concomitant]
     Indication: PREMEDICATION
     Route: 042
     Dates: start: 20100527
  15. PENTASA [Concomitant]
     Indication: CROHN^S DISEASE
     Route: 065
     Dates: start: 2001

REACTIONS (7)
  - Dyskinesia [Recovered/Resolved]
  - Infusion related reaction [Recovered/Resolved]
  - Dyspnoea [Recovered/Resolved]
  - Drug specific antibody present [Unknown]
  - Chills [Recovered/Resolved]
  - Chest discomfort [Recovered/Resolved]
  - Tremor [Recovered/Resolved]
